FAERS Safety Report 14869004 (Version 2)
Quarter: 2018Q2

REPORT INFORMATION
  Report Type: Report from Study
  Country: IT (occurrence: IT)
  Receive Date: 20180509
  Receipt Date: 20180518
  Transmission Date: 20180711
  Serious: Yes (Other)
  Sender: FDA-Public Use
  Company Number: IT-EMD SERONO-9025525

PATIENT
  Age: 14 Year
  Sex: Female

DRUGS (1)
  1. SAIZEN [Suspect]
     Active Substance: SOMATROPIN
     Indication: GROWTH FAILURE
     Dosage: LIQUID
     Route: 058
     Dates: start: 20140328

REACTIONS (1)
  - Retinal degeneration [Unknown]

NARRATIVE: CASE EVENT DATE: 20141115
